FAERS Safety Report 6723228-4 (Version None)
Quarter: 2010Q2

REPORT INFORMATION
  Report Type: 
  Country: None (occurrence: None)
  Receive Date: 20100513
  Receipt Date: 20100506
  Transmission Date: 20101027
  Serious: Yes (Death, Other)
  Sender: FDA-Public Use
  Company Number: SE-ABBOTT-09P-150-0616282-00

PATIENT
  Sex: Female

DRUGS (4)
  1. REDUCTIL 10MG [Suspect]
     Indication: OBESITY
     Dates: start: 20091111, end: 20091117
  2. XENICAL [Suspect]
     Indication: OBESITY
     Dates: start: 20091118, end: 20091121
  3. LYRICA [Concomitant]
     Indication: DRUG USE FOR UNKNOWN INDICATION
  4. XENICAL [Concomitant]
     Indication: DRUG USE FOR UNKNOWN INDICATION

REACTIONS (3)
  - CARDIAC ARREST [None]
  - PALPITATIONS [None]
  - SUDDEN DEATH [None]
